FAERS Safety Report 4286650-4 (Version None)
Quarter: 2004Q1

REPORT INFORMATION
  Report Type: 
  Country: None (occurrence: None)
  Receive Date: 20040206
  Receipt Date: 20030130
  Transmission Date: 20041129
  Serious: Yes (Life-Threatening, Hospitalization, Other)
  Sender: FDA-Public Use
  Company Number: WAES 0301USA03167

PATIENT
  Age: 40 Year
  Sex: Male
  Weight: 86 kg

DRUGS (6)
  1. CATAPRES [Concomitant]
     Dates: start: 19990101, end: 19991213
  2. LASIX [Concomitant]
     Indication: HYPERTENSION
     Dates: start: 19890101, end: 20030706
  3. LASIX [Concomitant]
     Indication: OEDEMA PERIPHERAL
     Dates: start: 19890101, end: 20030706
  4. COZAAR [Concomitant]
     Indication: HYPERTENSION
     Dates: start: 19800101
  5. VIOXX [Suspect]
     Route: 048
     Dates: start: 19991201, end: 20000401
  6. MICARDIS [Concomitant]
     Indication: HYPERTENSION
     Dates: start: 19800101

REACTIONS (32)
  - ABDOMINAL ADHESIONS [None]
  - ASTHMA [None]
  - BACTERIAL INFECTION [None]
  - BLOOD DISORDER [None]
  - CARDIAC FAILURE CONGESTIVE [None]
  - CHOLECYSTITIS CHRONIC [None]
  - CHOLESTEROSIS [None]
  - CHRONIC OBSTRUCTIVE AIRWAYS DISEASE [None]
  - DYSPEPSIA [None]
  - DYSPNOEA [None]
  - GASTROOESOPHAGEAL REFLUX DISEASE [None]
  - GLAUCOMA [None]
  - GYNAECOMASTIA [None]
  - HEPATIC STEATOSIS [None]
  - HYPERCAPNIA [None]
  - HYPERGLYCAEMIA [None]
  - HYPOXIA [None]
  - INCISIONAL HERNIA [None]
  - LOW DENSITY LIPOPROTEIN INCREASED [None]
  - MALNUTRITION [None]
  - OBESITY [None]
  - PICKWICKIAN SYNDROME [None]
  - POSTOPERATIVE FEVER [None]
  - PULMONARY EMBOLISM [None]
  - PULMONARY HYPERTENSION [None]
  - REFRACTORY ANAEMIA [None]
  - RHEUMATOID ARTHRITIS [None]
  - SLEEP APNOEA SYNDROME [None]
  - STAPHYLOCOCCAL INFECTION [None]
  - THROMBOSIS [None]
  - UMBILICAL HERNIA [None]
  - UMBILICAL HERNIA REPAIR [None]
